FAERS Safety Report 18914070 (Version 2)
Quarter: 2021Q1

REPORT INFORMATION
  Report Type: Spontaneous
  Country: JP (occurrence: JP)
  Receive Date: 20210219
  Receipt Date: 20210226
  Transmission Date: 20210420
  Serious: Yes (Hospitalization)
  Sender: FDA-Public Use
  Company Number: JP-GLAXOSMITHKLINE-JP2020240364

PATIENT
  Age: 43 Year
  Sex: Male

DRUGS (4)
  1. EPIVIR [Suspect]
     Active Substance: LAMIVUDINE
     Indication: HIV INFECTION
     Dosage: 0.116 DF, QD IMMEDIATELY AFTER DINNER
     Route: 048
  2. ZIAGEN [Suspect]
     Active Substance: ABACAVIR SULFATE
     Dosage: 600 MG, QD IMMEDIATELY AFTER DINNER
     Route: 048
  3. TIVICAY [Suspect]
     Active Substance: DOLUTEGRAVIR SODIUM
     Dosage: 50 MG, QD IMMEDIATELY AFTER DINNER
     Route: 048
  4. INSULIN [Concomitant]
     Active Substance: INSULIN NOS

REACTIONS (3)
  - Hospitalisation [Unknown]
  - Product use issue [Unknown]
  - Prescribed underdose [Unknown]
